FAERS Safety Report 13660829 (Version 4)
Quarter: 2018Q3

REPORT INFORMATION
  Report Type: Spontaneous
  Country: US (occurrence: US)
  Receive Date: 20170616
  Receipt Date: 20180801
  Transmission Date: 20181010
  Serious: No
  Sender: FDA-Public Use
  Company Number: US-ASTRAZENECA-2017SE63030

PATIENT
  Age: 868 Month
  Sex: Male

DRUGS (10)
  1. BYDUREON [Suspect]
     Active Substance: EXENATIDE
     Dosage: KIT, 2MG ONCE A WEEK
     Route: 058
  2. BYETTA [Suspect]
     Active Substance: EXENATIDE
     Indication: TYPE 2 DIABETES MELLITUS
     Route: 058
     Dates: start: 2012
  3. METFORMIN [Concomitant]
     Active Substance: METFORMIN HYDROCHLORIDE
  4. LISINOPRIL. [Concomitant]
     Active Substance: LISINOPRIL
  5. XALATAN [Concomitant]
     Active Substance: LATANOPROST
  6. CELEBREX [Concomitant]
     Active Substance: CELECOXIB
  7. BYDUREON [Suspect]
     Active Substance: EXENATIDE
     Route: 058
  8. METOPROLOL SUCCINATE. [Concomitant]
     Active Substance: METOPROLOL SUCCINATE
  9. ACIPHEX [Concomitant]
     Active Substance: RABEPRAZOLE SODIUM
  10. XANAX [Concomitant]
     Active Substance: ALPRAZOLAM

REACTIONS (7)
  - Injection site extravasation [Unknown]
  - Intentional product misuse [Unknown]
  - Pain [Not Recovered/Not Resolved]
  - Paraesthesia [Not Recovered/Not Resolved]
  - Underdose [Unknown]
  - Device malfunction [Unknown]
  - Injection site haemorrhage [Unknown]

NARRATIVE: CASE EVENT DATE: 201408
